FAERS Safety Report 7438243-5 (Version None)
Quarter: 2011Q2

REPORT INFORMATION
  Report Type: 
  Country: None (occurrence: None)
  Receive Date: 20110426
  Receipt Date: 20100216
  Transmission Date: 20111010
  Serious: No
  Sender: FDA-Public Use
  Company Number: US-BAYER-201014861NA

PATIENT
  Sex: Female

DRUGS (1)
  1. YAZ [Suspect]
     Dosage: UNK
     Dates: start: 20090901

REACTIONS (6)
  - FLUID RETENTION [None]
  - SKIN FISSURES [None]
  - OEDEMA PERIPHERAL [None]
  - ABDOMINAL DISTENSION [None]
  - SKIN WRINKLING [None]
  - BLOOD PRESSURE INCREASED [None]
